FAERS Safety Report 23754077 (Version 2)
Quarter: 2024Q2

REPORT INFORMATION
  Report Type: Spontaneous
  Country: JP (occurrence: JP)
  Receive Date: 20240417
  Receipt Date: 20240531
  Transmission Date: 20240716
  Serious: Yes (Hospitalization)
  Sender: FDA-Public Use
  Company Number: JP-Eisai-202400408_DVG_P_1

PATIENT
  Age: 65 Year
  Sex: Female

DRUGS (2)
  1. DAYVIGO [Suspect]
     Active Substance: LEMBOREXANT
     Indication: Insomnia
     Route: 048
     Dates: end: 20240331
  2. CISPLATIN [Suspect]
     Active Substance: CISPLATIN
     Indication: Product used for unknown indication
     Dosage: DOSE AND FREQUENCY UNKNOWN
     Route: 065
     Dates: end: 20240331

REACTIONS (1)
  - Interstitial lung disease [Recovering/Resolving]

NARRATIVE: CASE EVENT DATE: 20240401
